FAERS Safety Report 12654410 (Version 1)
Quarter: 2016Q3

REPORT INFORMATION
  Report Type: Spontaneous
  Country: US (occurrence: US)
  Receive Date: 20160816
  Receipt Date: 20160816
  Transmission Date: 20161109
  Serious: No
  Sender: FDA-Public Use
  Company Number: US-DRREDDYS-USA/USA/16/0068107

PATIENT
  Age: 54 Year
  Sex: Female

DRUGS (1)
  1. LEVOFLOXACIN TABLETS [Suspect]
     Active Substance: LEVOFLOXACIN
     Indication: GASTROINTESTINAL BACTERIAL OVERGROWTH
     Route: 048

REACTIONS (2)
  - Asthenia [Recovering/Resolving]
  - Arthralgia [Recovering/Resolving]

NARRATIVE: CASE EVENT DATE: 201601
